FAERS Safety Report 8905544 (Version 1)
Quarter: 2012Q4

REPORT INFORMATION
  Report Type: 
  Country: DE (occurrence: DE)
  Receive Date: 20121109
  Receipt Date: 20121109
  Transmission Date: 20130627
  Serious: Yes (Death, Life-Threatening)
  Sender: FDA-Public Use
  Company Number: DE-ASTRAZENECA-2012SE84252

PATIENT
  Age: 53 Year
  Sex: Male

DRUGS (21)
  1. SEROQUEL [Suspect]
     Route: 048
     Dates: start: 20120530, end: 20120531
  2. SEROQUEL [Suspect]
     Route: 048
     Dates: start: 20120601
  3. ZYPREXA [Suspect]
     Route: 048
     Dates: start: 20120518, end: 20120531
  4. ZYPREXA [Suspect]
     Route: 048
     Dates: start: 20120601
  5. MIRTAZAPINE [Concomitant]
     Route: 048
     Dates: start: 20120301
  6. CITALOPRAM [Concomitant]
     Route: 048
     Dates: start: 20120301, end: 20120529
  7. SELEGILIN [Concomitant]
     Route: 048
     Dates: start: 20120301
  8. COMTESS [Concomitant]
     Route: 048
     Dates: start: 20120301
  9. MADOPAR [Concomitant]
     Route: 048
     Dates: start: 20120301
  10. LEVODOPA [Concomitant]
     Dosage: 500/125 mg/day
     Route: 048
     Dates: start: 20120301
  11. CLARIUM [Concomitant]
     Route: 048
     Dates: start: 20120601
  12. CLARIUM [Concomitant]
     Route: 048
     Dates: start: 20120301, end: 20120529
  13. CLARIUM [Concomitant]
     Route: 048
     Dates: start: 20120530, end: 20120531
  14. TOREM [Concomitant]
     Route: 048
     Dates: start: 20120301, end: 20120529
  15. TOREM [Concomitant]
     Route: 048
     Dates: start: 20120530
  16. XIPAMIDE [Concomitant]
     Route: 048
     Dates: start: 20120301
  17. ALLOPURINOL [Concomitant]
     Route: 048
     Dates: start: 20120301
  18. KALINOR [Concomitant]
     Route: 048
     Dates: start: 20120524, end: 20120527
  19. KALINOR [Concomitant]
     Route: 048
     Dates: start: 20120528
  20. CLEXANE [Concomitant]
     Route: 058
     Dates: start: 20120601
  21. CEFTRIAXON [Concomitant]
     Route: 048
     Dates: start: 20120526, end: 20120601

REACTIONS (3)
  - Death [Fatal]
  - Pulmonary embolism [Unknown]
  - Cardiac arrest [Unknown]
